FAERS Safety Report 7518672-1 (Version None)
Quarter: 2011Q2

REPORT INFORMATION
  Report Type: 
  Country: None (occurrence: None)
  Receive Date: 20110602
  Receipt Date: 20110527
  Transmission Date: 20111010
  Serious: Yes (Death)
  Sender: FDA-Public Use
  Company Number: PH-JNJFOC-20110409651

PATIENT
  Sex: Male

DRUGS (2)
  1. CLONAZEPAM [Concomitant]
  2. PALIPERIDONE [Suspect]
     Indication: SCHIZOPHRENIA
     Route: 048
     Dates: start: 20070913

REACTIONS (2)
  - COMA HEPATIC [None]
  - HEPATIC CIRRHOSIS [None]
